FAERS Safety Report 5322923-1 (Version None)
Quarter: 2007Q1

REPORT INFORMATION
  Report Type: 
  Country: None (occurrence: None)
  Receive Date: 20070222
  Receipt Date: 20061101
  Transmission Date: 20070707
  Serious: Yes (Other)
  Sender: FDA-Public Use
  Company Number: 2006136361

PATIENT
  Age: 33 Year
  Sex: Female
  Weight: 58.9676 kg

DRUGS (10)
  1. EXUBERA [Suspect]
     Indication: DIABETES MELLITUS
     Dosage: 9 MG (3 MG,3 IN 1 D),INHALATION
     Route: 055
     Dates: start: 20061019
  2. LANTUS [Concomitant]
  3. ALL OTHER THERAPEUTIC PRODUCTS (ALL OTHER THERAPEUTIC PRODUCTS) [Concomitant]
  4. LIPITOR [Concomitant]
  5. TOPAMAX [Concomitant]
  6. MULTIVITAMIN [Concomitant]
  7. BETACAROTENE (BETACAROTENE) [Concomitant]
  8. FISH OIL (FISH OIL) [Concomitant]
  9. FOLIC ACID [Concomitant]
  10. NOVOLIN N [Concomitant]

REACTIONS (2)
  - BLOOD GLUCOSE INCREASED [None]
  - DRUG EFFECT DECREASED [None]
